FAERS Safety Report 25707544 (Version 2)
Quarter: 2025Q3

REPORT INFORMATION
  Report Type: Report from Study
  Country: US (occurrence: US)
  Receive Date: 20250820
  Receipt Date: 20250911
  Transmission Date: 20251020
  Serious: No
  Sender: ABBVIE
  Company Number: US-ABBVIE-6421932

PATIENT
  Age: 80 Year
  Sex: Female
  Weight: 73.48 kg

DRUGS (1)
  1. RINVOQ [Suspect]
     Active Substance: UPADACITINIB
     Indication: Rheumatoid arthritis
     Dosage: FORM STRENGTH: 15 MILLIGRAM
     Route: 048
     Dates: start: 202003

REACTIONS (2)
  - Sinusitis [Unknown]
  - Cataract [Unknown]

NARRATIVE: CASE EVENT DATE: 20250801
